FAERS Safety Report 21209179 (Version 1)
Quarter: 2022Q3

REPORT INFORMATION
  Report Type: Spontaneous
  Country: US (occurrence: US)
  Receive Date: 20220813
  Receipt Date: 20220813
  Transmission Date: 20221026
  Serious: Yes (Other)
  Sender: FDA-Public Use
  Company Number: US-ALVOGEN-2022-ALVOGEN-120729

PATIENT
  Age: 29 Year
  Sex: Male

DRUGS (22)
  1. DAPSONE [Suspect]
     Active Substance: DAPSONE
     Indication: Lyme disease
  2. DISULFIRAM [Suspect]
     Active Substance: DISULFIRAM
     Indication: Lyme disease
  3. NITROFURANTOIN MONOHYDRATE MACROCRYSTALS [Suspect]
     Active Substance: NITROFURANTOIN\NITROFURANTOIN MONOHYDRATE
     Indication: Lyme disease
     Route: 048
  4. HYDROXYCHLOROQUINE [Suspect]
     Active Substance: HYDROXYCHLOROQUINE
     Indication: Lyme disease
     Route: 048
  5. NYSTATIN [Suspect]
     Active Substance: NYSTATIN
     Indication: Lyme disease
     Dosage: 500,000 UNITS PO BID
  6. SULFAMETHOXAZOLE\TRIMETHOPRIM [Suspect]
     Active Substance: SULFAMETHOXAZOLE\TRIMETHOPRIM
     Indication: Lyme disease
     Route: 048
  7. CEFUROXIME AXETIL [Suspect]
     Active Substance: CEFUROXIME AXETIL
     Indication: Lyme disease
  8. DOXYCYCLINE [Suspect]
     Active Substance: DOXYCYCLINE
     Indication: Lyme disease
     Route: 048
  9. RIFAMPIN [Suspect]
     Active Substance: RIFAMPIN
     Indication: Lyme disease
  10. PYRAZINAMIDE [Suspect]
     Active Substance: PYRAZINAMIDE
     Indication: Lyme disease
  11. AZITHROMYCIN [Suspect]
     Active Substance: AZITHROMYCIN
     Indication: Lyme disease
  12. GLUTATHIONE [Suspect]
     Active Substance: GLUTATHIONE
     Indication: Lyme disease
     Route: 048
  13. MINOCYCLINE [Suspect]
     Active Substance: MINOCYCLINE HYDROCHLORIDE
     Indication: Lyme disease
  14. CLARITHROMYCIN [Suspect]
     Active Substance: CLARITHROMYCIN
     Indication: Lyme disease
     Route: 048
  15. RIFABUTIN [Suspect]
     Active Substance: RIFABUTIN
     Indication: Lyme disease
  16. METHYLENE BLUE [Concomitant]
     Active Substance: METHYLENE BLUE
     Indication: Product used for unknown indication
     Route: 048
  17. LEUCOVORIN [Concomitant]
     Active Substance: LEUCOVORIN
     Indication: Product used for unknown indication
     Route: 048
  18. LECITHIN [Concomitant]
     Active Substance: LECITHIN
     Indication: Jarisch-Herxheimer reaction
  19. GLUTATHIONE [Concomitant]
     Active Substance: GLUTATHIONE
     Indication: Jarisch-Herxheimer reaction
  20. ROPINIROLE [Concomitant]
     Active Substance: ROPINIROLE
     Indication: Product used for unknown indication
  21. L-methyl folate [Concomitant]
     Indication: Product used for unknown indication
  22. AMLODIPINE [Concomitant]
     Active Substance: AMLODIPINE BESYLATE
     Indication: Product used for unknown indication

REACTIONS (8)
  - Disease recurrence [Recovered/Resolved]
  - Drug ineffective [Recovered/Resolved]
  - Lyme disease [Recovered/Resolved]
  - Neuropathy peripheral [Recovered/Resolved]
  - Jarisch-Herxheimer reaction [Recovered/Resolved]
  - Nausea [Recovered/Resolved]
  - Fatigue [Recovered/Resolved]
  - Feeling abnormal [Recovered/Resolved]
